FAERS Safety Report 9341743 (Version 1)
Quarter: 2013Q2

REPORT INFORMATION
  Report Type: Spontaneous
  Country: BR (occurrence: BR)
  Receive Date: 20130611
  Receipt Date: 20130611
  Transmission Date: 20140414
  Serious: Yes (Hospitalization)
  Sender: FDA-Public Use
  Company Number: BR-ASTRAZENECA-2013SE40222

PATIENT
  Age: 740 Month
  Sex: Male
  Weight: 72 kg

DRUGS (4)
  1. CRESTOR [Suspect]
     Route: 048
     Dates: start: 2011
  2. DOXAZOSIN [Concomitant]
     Indication: PROSTATOMEGALY
  3. CARVERDILOL [Concomitant]
  4. NAPRIX [Concomitant]

REACTIONS (1)
  - Myocardial ischaemia [Recovered/Resolved]
